FAERS Safety Report 4731300-3 (Version None)
Quarter: 2005Q3

REPORT INFORMATION
  Report Type: 
  Country: None (occurrence: None)
  Receive Date: 20050729
  Receipt Date: 20050720
  Transmission Date: 20060218
  Serious: Yes (Other)
  Sender: FDA-Public Use
  Company Number: 2005103893

PATIENT
  Age: 15 Month
  Sex: Female
  Weight: 16.3295 kg

DRUGS (1)
  1. INFANT'S PEDIACARE DECONGESTANT AND COUGH DROPS (PSEUDOEPHEDRINE, DEXT [Suspect]
     Indication: COUGH
     Dosage: ^SECOND LINE OF DROPPER^ Q4H, ORAL
     Route: 048
     Dates: start: 20050719, end: 20050720

REACTIONS (2)
  - DYSPNOEA [None]
  - WHEEZING [None]
